FAERS Safety Report 8037835-2 (Version None)
Quarter: 2012Q1

REPORT INFORMATION
  Report Type: 
  Country: None (occurrence: None)
  Receive Date: 20120111
  Receipt Date: 20120106
  Transmission Date: 20120608
  Serious: Yes (Other)
  Sender: FDA-Public Use
  Company Number: PHHY2012FR001552

PATIENT

DRUGS (3)
  1. RASILEZ [Suspect]
     Route: 048
  2. LASIX [Concomitant]
  3. ALDACTONE [Concomitant]

REACTIONS (3)
  - ATRIOVENTRICULAR BLOCK [None]
  - HYPERKALAEMIA [None]
  - RENAL FAILURE ACUTE [None]
